FAERS Safety Report 7415071-8 (Version None)
Quarter: 2011Q2

REPORT INFORMATION
  Report Type: 
  Country: None (occurrence: None)
  Receive Date: 20110414
  Receipt Date: 20110402
  Transmission Date: 20111010
  Serious: Yes (Hospitalization, Other)
  Sender: FDA-Public Use
  Company Number: CZ-PAR PHARMACEUTICAL, INC-2011SCPR002850

PATIENT
  Age: 47 Year
  Sex: Female

DRUGS (4)
  1. CLOZAPINE [Suspect]
     Dosage: 300 MG, DAILY
     Route: 065
  2. CLONAZEPAM [Suspect]
     Dosage: 1.5 MG, DAILY
     Route: 065
  3. CLOZAPINE [Suspect]
     Dosage: 400 MG, DAILY
     Route: 065
  4. LEVOMEPROMAZINE [Suspect]
     Dosage: 200 MG, DAILY
     Route: 065

REACTIONS (1)
  - ILEUS PARALYTIC [None]
